FAERS Safety Report 5815375-6 (Version None)
Quarter: 2008Q3

REPORT INFORMATION
  Report Type: 
  Country: None (occurrence: None)
  Receive Date: 20080715
  Receipt Date: 20080630
  Transmission Date: 20090109
  Serious: Yes (Hospitalization)
  Sender: FDA-Public Use
  Company Number: DSA_32085_2008

PATIENT
  Sex: Female

DRUGS (2)
  1. TAVOR /0273201/ (TAVOR - LORAZEPAM) (NOT SPECIFIED) [Suspect]
     Dosage: 10 DF 1X ORAL
     Route: 048
     Dates: start: 20080626, end: 20080626
  2. TEGRETAL (TEGRETAL - SLOW RELEASE CARBAMAZEPINE) (NOT SPECIFIED) [Suspect]
     Dosage: ORAL
     Route: 048
     Dates: start: 20080626, end: 20080626

REACTIONS (3)
  - INTENTIONAL OVERDOSE [None]
  - NYSTAGMUS [None]
  - SUICIDE ATTEMPT [None]
